FAERS Safety Report 10419801 (Version 1)
Quarter: 2014Q2

REPORT INFORMATION
  Report Type: Spontaneous
  Country: US (occurrence: None)
  Receive Date: 20140625
  Receipt Date: 20140625
  Transmission Date: 20141212
  Serious: Yes (Other)
  Sender: FDA-Public Use
  Company Number: PHEH2014US007046

PATIENT
  Age: 53 Year
  Sex: Female

DRUGS (9)
  1. AFINITOR (RAD) UNKNOWN [Suspect]
     Dosage: 10 MG, UNK
  2. HORMONE BLOCKER (NO INGREDIENTS/SUBSTANCES) [Concomitant]
  3. VITAMIN C (ASCORBIC ACID) [Concomitant]
  4. B COMPLEX (NICOTINAMIDE, PYRIDOXINE HYDROCHLORIDE, RIBOFLAVIN, THIAMINE HYDROCHLORIDE) [Concomitant]
  5. CITRICAL (CALCIUM CITRATE) [Concomitant]
  6. PROTOXIX (PANTOPRAZOLE SODIUM SESQUIHYDRATE) [Concomitant]
  7. NORCO (HYDROCODONE BITARTRATE, PARACETAMOL), 10/325MG [Concomitant]
  8. SYNTHROID (LEVOTHYROXINE SODIUM) [Concomitant]
  9. MIRALAX (MACROGOL) [Concomitant]

REACTIONS (1)
  - Tuberculosis [None]
